FAERS Safety Report 8536454-9 (Version None)
Quarter: 2012Q3

REPORT INFORMATION
  Report Type: 
  Country: None (occurrence: None)
  Receive Date: 20120725
  Receipt Date: 20120718
  Transmission Date: 20120928
  Serious: Yes (Hospitalization)
  Sender: FDA-Public Use
  Company Number: US-AMGEN-USACT2012044032

PATIENT
  Age: 79 Year
  Sex: Male
  Weight: 76.553 kg

DRUGS (12)
  1. TRICOR [Concomitant]
     Indication: HYPERLIPIDAEMIA
     Dosage: 165 MG, QD
     Dates: start: 20050101
  2. PANITUMUMAB [Suspect]
     Indication: NON-SMALL CELL LUNG CANCER
     Dosage: 735 MG, UNK
     Route: 042
     Dates: start: 20120530
  3. CRESTOR [Concomitant]
     Indication: HYPERLIPIDAEMIA
     Dosage: 20 MG, QD
     Dates: start: 20050101
  4. HYZAAR [Concomitant]
     Indication: HYPERTENSION
     Dosage: UNK UNK, QD
     Dates: start: 20050101
  5. ALIMTA [Concomitant]
     Indication: NON-SMALL CELL LUNG CANCER
     Dosage: 950 MG, UNK
     Route: 042
     Dates: start: 20120530
  6. INSULIN HUMAN [Concomitant]
     Indication: DIABETES MELLITUS
     Dosage: UNK UNK, BID
     Dates: start: 20060101
  7. OMEPRAZOLE [Concomitant]
     Indication: GASTROOESOPHAGEAL REFLUX DISEASE
     Dosage: 20 MG, QD
     Dates: start: 20090101
  8. CARBOPLATIN [Concomitant]
     Indication: NON-SMALL CELL LUNG CANCER
     Dosage: 420 MG, UNK
     Route: 042
     Dates: start: 20120530
  9. SERTRALINE HYDROCHLORIDE [Concomitant]
     Indication: DEPRESSION
     Dosage: 50 MG, QD
     Dates: start: 20120523
  10. ATENOLOL [Concomitant]
     Indication: HYPERTENSION
     Dosage: 25 MG, QD
     Dates: start: 20050101
  11. WARFARIN SODIUM [Concomitant]
     Indication: ATRIAL FIBRILLATION
     Dosage: 5 MG, QD
     Dates: start: 20090101
  12. ZETIA [Concomitant]
     Indication: DIABETES MELLITUS
     Dosage: 10 MG, QD
     Dates: start: 20060101

REACTIONS (1)
  - CONVULSION [None]
